FAERS Safety Report 6721411-5 (Version None)
Quarter: 2010Q2

REPORT INFORMATION
  Report Type: 
  Country: None (occurrence: None)
  Receive Date: 20100512
  Receipt Date: 20100506
  Transmission Date: 20101027
  Serious: Yes (Hospitalization, Other)
  Sender: FDA-Public Use
  Company Number: GE-NOVOPROD-288734

PATIENT
  Age: 23 Year
  Sex: Female
  Weight: 55 kg

DRUGS (11)
  1. NOVORAPID [Suspect]
     Indication: TYPE 1 DIABETES MELLITUS
     Dosage: 22 IU, QD
     Route: 058
     Dates: start: 20090430
  2. NOVORAPID [Suspect]
     Dosage: 30 IU, UNK
  3. NOVORAPID [Suspect]
     Dosage: 18 IU, UNK
     Dates: start: 20090919
  4. INSULATARD [Suspect]
     Indication: TYPE 1 DIABETES MELLITUS
     Dosage: 42 IU, QD
     Dates: end: 20090430
  5. INSULATARD [Suspect]
     Dosage: 15 IU, QD
     Route: 058
     Dates: start: 20090430
  6. INSULATARD [Suspect]
     Dosage: 20 IU, QD
  7. INSULATARD [Suspect]
     Dosage: 16 IU, QD
     Dates: start: 20090919
  8. ACTRAPID [Suspect]
     Indication: TYPE 1 DIABETES MELLITUS
     Dosage: 42 IU, QD
     Dates: end: 20090430
  9. MAGNE B6                           /00869101/ [Concomitant]
     Dosage: 2X3 TAB, QD
     Route: 048
     Dates: start: 20090430, end: 20090630
  10. FERRO-FOLGAMMA                     /01256801/ [Concomitant]
     Dosage: 1X3 TAB, QD
     Route: 048
     Dates: start: 20090430, end: 20090630
  11. POTASSIUM IODATE [Concomitant]
     Dosage: 1 TAB, QD
     Route: 048
     Dates: start: 20090430, end: 20090530

REACTIONS (5)
  - CAESAREAN SECTION [None]
  - DRUG EXPOSURE DURING PREGNANCY [None]
  - INTRA-UTERINE DEATH [None]
  - PRE-ECLAMPSIA [None]
  - PREGNANCY [None]
